FAERS Safety Report 21572725 (Version 1)
Quarter: 2022Q4

REPORT INFORMATION
  Report Type: Spontaneous
  Country: US (occurrence: None)
  Receive Date: 20221108
  Receipt Date: 20221108
  Transmission Date: 20230113
  Serious: Yes (Life-Threatening, Hospitalization)
  Sender: FDA-Public Use
  Company Number: None

PATIENT
  Age: 88 Year
  Sex: Male

DRUGS (1)
  1. APIXABAN [Suspect]
     Active Substance: APIXABAN
     Indication: Atrial fibrillation
     Dates: start: 20160527, end: 20220701

REACTIONS (7)
  - Haemorrhage intracranial [None]
  - Fall [None]
  - Rib fracture [None]
  - Thoracic vertebral fracture [None]
  - Traumatic haemothorax [None]
  - Dementia [None]
  - Hospice care [None]

NARRATIVE: CASE EVENT DATE: 20220625
